FAERS Safety Report 16368752 (Version 1)
Quarter: 2019Q2

REPORT INFORMATION
  Report Type: Spontaneous
  Country: NL (occurrence: NL)
  Receive Date: 20190529
  Receipt Date: 20190529
  Transmission Date: 20190711
  Serious: Yes (Hospitalization)
  Sender: FDA-Public Use
  Company Number: NL-MYLANLABS-2019M1049849

PATIENT
  Age: 72 Year
  Sex: Female
  Weight: 68 kg

DRUGS (11)
  1. ACETYLSALICYLZUUR [Concomitant]
     Active Substance: ASPIRIN
     Dosage: 80 MILLIGRAM, QD
  2. NITROFURANTOINE [Concomitant]
     Active Substance: NITROFURANTOIN
     Dosage: 100 MILLIGRAM, QD,1DD2 AN
  3. OMEPRAZOL                          /00661201/ [Concomitant]
     Active Substance: OMEPRAZOLE
     Dosage: 40 MILLIGRAM, QD,1DD
  4. CYANOCOBALAMIN. [Concomitant]
     Active Substance: CYANOCOBALAMIN
     Dosage: UNK
  5. AMITRIPTYLINE [Interacting]
     Active Substance: AMITRIPTYLINE
     Indication: PRODUCT USED FOR UNKNOWN INDICATION
     Dosage: 1 DOSAGE FORM, Q8H,3DD
     Route: 048
     Dates: start: 2008, end: 20181008
  6. DIAZEPAM. [Interacting]
     Active Substance: DIAZEPAM
     Indication: ANXIETY
     Dosage: 7 MILLIGRAM, QD,1X PER DAG 7MG
     Route: 048
     Dates: start: 2008
  7. PARACETAMOL [Concomitant]
     Active Substance: ACETAMINOPHEN
     Dosage: 1000 MILLIGRAM, Q8H,3DD
  8. FOLIUMZUUR [Concomitant]
     Active Substance: FOLIC ACID
     Dosage: UNK
  9. CEFTRIAXON [Concomitant]
     Active Substance: CEFTRIAXONE
     Dosage: UNK
     Dates: start: 20181001, end: 20181005
  10. FENTANYL. [Suspect]
     Active Substance: FENTANYL
     Indication: PAIN
     Dosage: 1 DOSAGE FORM, Q3D,1X PER 3 DAGEN
     Route: 003
     Dates: start: 2017, end: 201809
  11. OXYCONTIN [Interacting]
     Active Substance: OXYCODONE HYDROCHLORIDE
     Indication: PAIN
     Dosage: 1 DOSAGE FORM, Q8H,3DD
     Route: 048
     Dates: start: 2008

REACTIONS (3)
  - Drug interaction [Recovering/Resolving]
  - Delirium [Recovering/Resolving]
  - Normocytic anaemia [Not Recovered/Not Resolved]

NARRATIVE: CASE EVENT DATE: 20170918
